FAERS Safety Report 9013060 (Version 2)
Quarter: 2013Q1

REPORT INFORMATION
  Report Type: Spontaneous
  Country: JP (occurrence: JP)
  Receive Date: 20130114
  Receipt Date: 20130124
  Transmission Date: 20140127
  Serious: Yes (Hospitalization, Disabling)
  Sender: FDA-Public Use
  Company Number: JP-MERCK-1301JPN005056

PATIENT
  Age: 31 Year
  Sex: Female

DRUGS (2)
  1. KIPRES [Suspect]
     Indication: ASTHMA
     Dosage: 10 MG, QD
     Route: 048
     Dates: start: 20120524, end: 20121201
  2. ADOAIR [Concomitant]
     Dosage: 500 MICROGRAM, QD
     Route: 055
     Dates: start: 20120524, end: 20121211

REACTIONS (1)
  - Eosinophilic pneumonia [Recovered/Resolved]
